FAERS Safety Report 4903974-5 (Version None)
Quarter: 2006Q1

REPORT INFORMATION
  Report Type: 
  Country: None (occurrence: None)
  Receive Date: 20060203
  Receipt Date: 20060125
  Transmission Date: 20060701
  Serious: Yes (Other)
  Sender: FDA-Public Use
  Company Number: 2006013596

PATIENT
  Age: 56 Year
  Sex: Female

DRUGS (3)
  1. HALCION [Suspect]
     Indication: LATENT TETANY
     Dosage: 0.1875 MG (0.125 MG, 3 IN 1 D)
  2. PROPRANOLOL [Concomitant]
  3. TRINORDIL (ETHINYLESTRADIOL, LEVONORGESTREL) [Concomitant]

REACTIONS (5)
  - DRUG DEPENDENCE [None]
  - DRUG WITHDRAWAL SYNDROME [None]
  - DYSPNOEA [None]
  - INCORRECT DOSE ADMINISTERED [None]
  - PALPITATIONS [None]
